FAERS Safety Report 15469339 (Version 26)
Quarter: 2022Q2

REPORT INFORMATION
  Report Type: Spontaneous
  Country: GB (occurrence: GB)
  Receive Date: 20181005
  Receipt Date: 20220527
  Transmission Date: 20220720
  Serious: Yes (Death, Life-Threatening, Hospitalization, Disabling, Other)
  Sender: FDA-Public Use
  Company Number: GB-MYLANLABS-2018M1073364

PATIENT
  Age: 47 Year
  Sex: Female

DRUGS (39)
  1. CLOZARIL [Suspect]
     Active Substance: CLOZAPINE
     Indication: Schizophrenia
     Dosage: 200 MILLIGRAM, QD (200 MG, PM, 1 DAY)
     Route: 048
     Dates: start: 20170317, end: 20180928
  2. CLOZARIL [Suspect]
     Active Substance: CLOZAPINE
     Indication: Blood cholesterol increased
     Dosage: 200 MILLIGRAM, QD (200 MG, QD)
     Route: 048
     Dates: start: 20170317, end: 20180928
  3. CLOZARIL [Suspect]
     Active Substance: CLOZAPINE
     Dosage: 200 MILLIGRAM, QD(200 MILLIGRAM, QD (PM) (EVERY 1 DAY)
     Route: 048
     Dates: start: 20170317, end: 20180928
  4. CLOZARIL [Suspect]
     Active Substance: CLOZAPINE
     Dosage: 10 MILLIGRAM, QD
     Route: 048
     Dates: end: 20180928
  5. CLOZARIL [Suspect]
     Active Substance: CLOZAPINE
     Dosage: 100 MILLIGRAM, QD
     Route: 048
     Dates: end: 20180928
  6. EZETIMIBE [Suspect]
     Active Substance: EZETIMIBE
     Indication: Blood cholesterol increased
     Dosage: 10 MILLIGRAM, QD (10 MG, QD)
     Route: 048
     Dates: end: 20180928
  7. EZETIMIBE [Suspect]
     Active Substance: EZETIMIBE
     Dosage: 10 MILLIGRAM, QD (10 MG, QD)
     Route: 048
     Dates: end: 20180928
  8. EZETIMIBE [Suspect]
     Active Substance: EZETIMIBE
     Dosage: 10 MILLIGRAM, QD (10 MG, QD)
     Route: 048
     Dates: end: 20180928
  9. EZETIMIBE [Suspect]
     Active Substance: EZETIMIBE
     Dosage: 10 MILLIGRAM, QD
     Route: 048
     Dates: end: 20180928
  10. LOSARTAN [Suspect]
     Active Substance: LOSARTAN
     Indication: Hypertension
     Dosage: 100 MILLIGRAM DAILY; 100 MG, QD
     Route: 048
     Dates: end: 20180928
  11. LOSARTAN [Suspect]
     Active Substance: LOSARTAN
     Indication: Schizophrenia
     Dosage: 200 MILLIGRAM, QD  (EVERY 1 DAY)
     Route: 048
     Dates: start: 20170317, end: 20180928
  12. LANSOPRAZOLE [Suspect]
     Active Substance: LANSOPRAZOLE
     Indication: Gastrooesophageal reflux disease
     Dosage: 30 MILLIGRAM DAILY; 30 MG, AM, QD
     Route: 065
     Dates: end: 20180928
  13. LANSOPRAZOLE [Suspect]
     Active Substance: LANSOPRAZOLE
     Indication: Blood cholesterol increased
     Dosage: 30 MILLIGRAM, QD (30 MG, QD   )
     Route: 065
     Dates: end: 20180928
  14. LANSOPRAZOLE [Suspect]
     Active Substance: LANSOPRAZOLE
     Dosage: 40 MILLIGRAM, QD
     Route: 048
     Dates: end: 20180928
  15. LANSOPRAZOLE [Suspect]
     Active Substance: LANSOPRAZOLE
     Dosage: 40 MILLIGRAM, QD
     Route: 048
  16. PRAVASTATIN [Suspect]
     Active Substance: PRAVASTATIN
     Indication: Blood cholesterol increased
     Dosage: 40 MILLIGRAM, QD (40 MG, PM, QHS)
     Route: 048
  17. PRAVASTATIN [Suspect]
     Active Substance: PRAVASTATIN
     Indication: Depression
     Dosage: 40 MILLIGRAM, QD (40 MG, PM, QHS, UNIT DOSE: 40 MG)
     Route: 048
  18. PRAVASTATIN [Suspect]
     Active Substance: PRAVASTATIN
     Dosage: 40 MILLIGRAM
     Route: 048
  19. PRAVASTATIN [Suspect]
     Active Substance: PRAVASTATIN
     Dosage: 40 MILLIGRAM (40 MG, PM, QHS)
     Route: 048
     Dates: end: 20180928
  20. PRAVASTATIN [Suspect]
     Active Substance: PRAVASTATIN
     Dosage: 40 MILLIGRAM, QD (40 MG, QD)
     Route: 048
  21. PRAVASTATIN [Suspect]
     Active Substance: PRAVASTATIN
     Dosage: 50 MILLIGRAM, QD (SODIUM SALT OF PRAVASTATIN)
     Route: 048
     Dates: start: 201709
  22. SERTRALINE [Suspect]
     Active Substance: SERTRALINE HYDROCHLORIDE
     Indication: Depression
     Dosage: 50 MILLIGRAM, QD, 50 MG, AM
     Route: 048
     Dates: start: 201709, end: 20180928
  23. FELODIPINE [Suspect]
     Active Substance: FELODIPINE
     Indication: Hypertension
     Dosage: 10 MILLIGRAM, QD
     Route: 048
     Dates: end: 20180928
  24. FELODIPINE [Suspect]
     Active Substance: FELODIPINE
     Dosage: 10 MILLIGRAM, QD/ AM
     Route: 048
     Dates: end: 20180928
  25. AMLODIPINE [Suspect]
     Active Substance: AMLODIPINE BESYLATE
     Indication: Hypertension
     Dosage: 100 MILLIGRAM, QD (START 28-SEP-2018)
     Route: 048
     Dates: end: 20180928
  26. HUMALOG MIX50/50 [Suspect]
     Active Substance: INSULIN LISPRO
     Indication: Diabetes mellitus
     Dosage: 120 INTERNATIONAL UNIT, TID, 120 IU, TID (360 INTERNATIONAL UNIT, QD)
     Route: 048
     Dates: end: 20180928
  27. HUMALOG MIX50/50 [Suspect]
     Active Substance: INSULIN LISPRO
     Dosage: 60 INTERNATIONAL UNIT, TID, 60 IU, TID (180 INTERNATIONAL UNIT, QD), 120 IU, TID,60 IU ALSO RECEIVED
     Route: 048
     Dates: end: 20180928
  28. HUMALOG MIX50/50 [Suspect]
     Active Substance: INSULIN LISPRO
     Dosage: 120 INTERNATIONAL UNIT, TID, 120 IU, TID 60 IU ALSO RECEIVED TID (360 INTERNATIONAL UNIT, QD)
     Route: 048
     Dates: end: 20180928
  29. HUMALOG MIX50/50 [Suspect]
     Active Substance: INSULIN LISPRO
     Dosage: 360 INTERNATIONAL UNIT, QD, 360 IU, QD (120 IU, TID)
     Route: 048
     Dates: end: 20180928
  30. HUMALOG MIX50/50 [Suspect]
     Active Substance: INSULIN LISPRO
     Dosage: 180 INTERNATIONAL UNIT, QD (60 IU, TID)
     Route: 048
     Dates: end: 20180928
  31. HUMALOG MIX50/50 [Suspect]
     Active Substance: INSULIN LISPRO
     Dosage: UNK
     Route: 065
  32. HUMALOG MIX50/50 [Suspect]
     Active Substance: INSULIN LISPRO
     Dosage: 360 INTERNATIONAL UNIT, QD (360 IU, QD)
     Route: 048
  33. HUMALOG MIX50/50 [Suspect]
     Active Substance: INSULIN LISPRO
     Dosage: 180 INTERNATIONAL UNIT, TID (60 IU, TID)
     Route: 048
     Dates: end: 20180928
  34. HUMALOG MIX50/50 [Suspect]
     Active Substance: INSULIN LISPRO
     Dosage: (120 INTERNATIONAL UNIT, 3 TIMES A DAY)
     Route: 048
     Dates: end: 20180928
  35. HUMALOG MIX50/50 [Suspect]
     Active Substance: INSULIN LISPRO
     Dosage: 120 IU, TID,60 IU ALSO RECEIVED
     Route: 048
     Dates: end: 20180928
  36. LOSARTAN POTASSIUM [Suspect]
     Active Substance: LOSARTAN POTASSIUM
     Indication: Schizophrenia
     Dosage: 200 MILLIGRAM, QD (200 MG, QD )
     Route: 048
     Dates: start: 20170317, end: 20180928
  37. LOSARTAN POTASSIUM [Suspect]
     Active Substance: LOSARTAN POTASSIUM
     Indication: Hypertension
     Dosage: 100 MILLIGRAM, QD, 100 MG, QD
     Route: 048
     Dates: end: 20180928
  38. PRAVASTATIN SODIUM [Suspect]
     Active Substance: PRAVASTATIN SODIUM
     Indication: Blood cholesterol increased
     Dosage: 50 MILLIGRAM, QD, 50 MG, QD
     Route: 048
     Dates: start: 201709
  39. PRAVASTATIN SODIUM [Suspect]
     Active Substance: PRAVASTATIN SODIUM
     Indication: Depression
     Dosage: 40 MILLIGRAM, QD, 40 MG, QD
     Route: 048

REACTIONS (9)
  - Pneumonia [Fatal]
  - Multiple organ dysfunction syndrome [Fatal]
  - Loss of consciousness [Fatal]
  - Incorrect route of product administration [Fatal]
  - Medication error [Fatal]
  - Intentional product misuse [Fatal]
  - Off label use [Fatal]
  - Overdose [Fatal]
  - Drug abuse [Unknown]

NARRATIVE: CASE EVENT DATE: 20180101
